FAERS Safety Report 5030427-9 (Version None)
Quarter: 2006Q2

REPORT INFORMATION
  Report Type: 
  Country: None (occurrence: None)
  Receive Date: 20060615
  Receipt Date: 20060528
  Transmission Date: 20061013
  Serious: Yes (Hospitalization, Other)
  Sender: FDA-Public Use
  Company Number: 2006PV014550

PATIENT
  Sex: Male
  Weight: 87.0906 kg

DRUGS (7)
  1. BYETTA [Suspect]
     Indication: DIABETES MELLITUS NON-INSULIN-DEPENDENT
     Dosage: 10 MCG; BID; SC;  5 MCG; BID; SC
     Route: 058
     Dates: start: 20051001, end: 20051101
  2. BYETTA [Suspect]
     Indication: DIABETES MELLITUS NON-INSULIN-DEPENDENT
     Dosage: 10 MCG; BID; SC;  5 MCG; BID; SC
     Route: 058
     Dates: start: 20051101
  3. METFORMIN [Concomitant]
  4. AMARYL [Concomitant]
  5. TOPROL-XL [Concomitant]
  6. LISINOPRIL [Concomitant]
  7. LIPITOR [Concomitant]

REACTIONS (1)
  - LUNG NEOPLASM MALIGNANT [None]
